FAERS Safety Report 5339295-9 (Version None)
Quarter: 2007Q2

REPORT INFORMATION
  Report Type: 
  Country: None (occurrence: None)
  Receive Date: 20070525
  Receipt Date: 20070514
  Transmission Date: 20071010
  Serious: Yes (Life-Threatening, Hospitalization, Other)
  Sender: FDA-Public Use
  Company Number: A-JP2007-14516

PATIENT
  Age: 71 Year
  Sex: Female
  Weight: 41 kg

DRUGS (5)
  1. TRACLEER [Suspect]
     Indication: PULMONARY HYPERTENSION
     Dosage: 31.25 MG, BID, ORAL
     Route: 048
     Dates: start: 20070228, end: 20070305
  2. BERAPROST (BERAPROST) [Concomitant]
  3. ENALAPRIL MALEATE [Concomitant]
  4. URSODIOL [Concomitant]
  5. OMEPRAZOLE [Concomitant]

REACTIONS (5)
  - ASCITES [None]
  - CONDITION AGGRAVATED [None]
  - NEUTROPHIL COUNT DECREASED [None]
  - PORTAL HYPERTENSION [None]
  - WHITE BLOOD CELL COUNT DECREASED [None]
